FAERS Safety Report 9553767 (Version 2)
Quarter: 2014Q3

REPORT INFORMATION
  Report Type: Spontaneous
  Country: US (occurrence: None)
  Receive Date: 20130815
  Receipt Date: 20140815
  Transmission Date: 20150326
  Serious: Yes (Hospitalization, Other)
  Sender: FDA-Public Use
  Company Number: ADR-2013-00586

PATIENT
  Age: 17 Year
  Sex: Male

DRUGS (2)
  1. LIORESAL [Suspect]
     Active Substance: BACLOFEN
     Indication: MUSCLE SPASTICITY
     Dates: start: 20050711
  2. BACLOFEN. [Suspect]
     Active Substance: BACLOFEN
     Indication: MUSCLE SPASTICITY

REACTIONS (14)
  - Convulsion [None]
  - Aggression [None]
  - Tachycardia [None]
  - Tremor [None]
  - Accidental overdose [None]
  - Drug withdrawal syndrome [None]
  - Muscle spasticity [None]
  - Abnormal behaviour [None]
  - Implant site warmth [None]
  - Hyperhidrosis [None]
  - Hypotonia [None]
  - Dyspnoea [None]
  - Clonus [None]
  - Hallucination [None]
